FAERS Safety Report 8813644 (Version 2)
Quarter: 2013Q2

REPORT INFORMATION
  Report Type: Spontaneous
  Country: YT (occurrence: FR)
  Receive Date: 20120927
  Receipt Date: 20130604
  Transmission Date: 20140414
  Serious: Yes (Other)
  Sender: FDA-Public Use
  Company Number: YT-009507513-1209FRA008262

PATIENT
  Sex: Male

DRUGS (1)
  1. TEMODAL [Suspect]
     Indication: MALIGNANT GLIOMA
     Dosage: UNK
     Dates: start: 2010

REACTIONS (1)
  - Recurrent cancer [Not Recovered/Not Resolved]
